FAERS Safety Report 26000319 (Version 4)
Quarter: 2025Q4

REPORT INFORMATION
  Report Type: Report from Study
  Country: US (occurrence: US)
  Receive Date: 20251105
  Receipt Date: 20251230
  Transmission Date: 20260118
  Serious: Yes (Hospitalization, Other)
  Sender: BAYER HEALTHCARE PHARMACEUTICALS INC.
  Company Number: US-BAYER-2025A143463

PATIENT
  Age: 83 Year
  Sex: Male
  Weight: 85.261 kg

DRUGS (14)
  1. ADEMPAS [Suspect]
     Active Substance: RIOCIGUAT
     Indication: Pulmonary arterial hypertension
     Dosage: UNK
     Dates: start: 20240605
  2. ADEMPAS [Suspect]
     Active Substance: RIOCIGUAT
     Indication: Pulmonary arterial hypertension
     Dosage: 1 MG, BID
     Route: 048
  3. ADEMPAS [Suspect]
     Active Substance: RIOCIGUAT
     Indication: Pulmonary arterial hypertension
     Dosage: 1 MG, TID
     Route: 048
  4. BREO ELLIPTA [Concomitant]
     Active Substance: FLUTICASONE FUROATE\VILANTEROL TRIFENATATE
  5. ENOXAPARIN SODIUM [Concomitant]
     Active Substance: ENOXAPARIN SODIUM
  6. ALBUTEROL SULFATE [Concomitant]
     Active Substance: ALBUTEROL SULFATE
  7. OXYGEN [Concomitant]
     Active Substance: OXYGEN
  8. VITAMIN C [Concomitant]
     Active Substance: ASCORBIC ACID
  9. MONTELUKAST SODIUM [Concomitant]
     Active Substance: MONTELUKAST SODIUM
  10. MINERALS\VITAMINS [Concomitant]
     Active Substance: MINERALS\VITAMINS
  11. DIPHENHYDRAMINE HYDROCHLORIDE [Concomitant]
     Active Substance: DIPHENHYDRAMINE HYDROCHLORIDE
  12. LOVASTATIN [Concomitant]
     Active Substance: LOVASTATIN
  13. FLUTICASONE PROPIONATE [Concomitant]
     Active Substance: FLUTICASONE PROPIONATE
  14. SENNA [Concomitant]
     Active Substance: SENNOSIDES

REACTIONS (13)
  - Fall [None]
  - Syncope [None]
  - Syncope [Not Recovered/Not Resolved]
  - Loss of consciousness [None]
  - Fall [None]
  - Blood pressure abnormal [None]
  - Dehydration [None]
  - Dehydration [None]
  - Blood iron decreased [None]
  - Hypotension [Not Recovered/Not Resolved]
  - Inappropriate schedule of product administration [None]
  - Product dose omission issue [None]
  - Inappropriate schedule of product administration [None]

NARRATIVE: CASE EVENT DATE: 20250101
